FAERS Safety Report 20213608 (Version 2)
Quarter: 2022Q3

REPORT INFORMATION
  Report Type: Spontaneous
  Country: FR (occurrence: FR)
  Receive Date: 20211221
  Receipt Date: 20220825
  Transmission Date: 20221027
  Serious: Yes (Death)
  Sender: FDA-Public Use
  Company Number: None

PATIENT
  Age: 76 Year
  Sex: Male
  Weight: 58 kg

DRUGS (10)
  1. AMIODARONE [Suspect]
     Active Substance: AMIODARONE
     Indication: Atrial fibrillation
     Dosage: UNIT DOSE : 1 DF
     Route: 048
     Dates: start: 20200207, end: 20210315
  2. AMIODARONE [Suspect]
     Active Substance: AMIODARONE
     Dosage: UNIT DOSE : 1 DF
     Route: 048
     Dates: start: 20210804, end: 20211010
  3. BISOPROLOL [Concomitant]
     Active Substance: BISOPROLOL
     Indication: Atrial fibrillation
     Dosage: UNIT DOSE : 1 DF
     Route: 048
     Dates: start: 20210315, end: 20211010
  4. RISPERIDONE [Concomitant]
     Active Substance: RISPERIDONE
     Indication: Mental disorder
     Dosage: LONG COURSE , UNIT DOSE : 1 DF, FREQUENCY TIME : 1 DAY, DURATION : 10 MONTH
     Route: 048
     Dates: start: 201910, end: 202008
  5. RISPERIDONE [Concomitant]
     Active Substance: RISPERIDONE
     Dosage: UNIT DOSE: 1 DF, FREQUENCY TIME : 1 DAY, DURATION: 5 MONTHS
     Dates: start: 202105, end: 20211010
  6. EXELON [Concomitant]
     Active Substance: RIVASTIGMINE TARTRATE
     Indication: Cognitive disorder
     Dosage: LONG COURSE , UNIT DOSE : 1 DF
     Route: 048
  7. ELIQUIS [Concomitant]
     Active Substance: APIXABAN
     Indication: Atrial fibrillation
     Dosage: 1 DF
     Route: 048
     Dates: start: 20200202
  8. SILODOSIN [Concomitant]
     Active Substance: SILODOSIN
     Indication: Prostatic adenoma
     Dosage: LONG COURSE
     Dates: start: 202004
  9. LEVOTHYROXINE [Concomitant]
     Active Substance: LEVOTHYROXINE
     Indication: Product used for unknown indication
     Dates: start: 20211002, end: 20211010
  10. FUROSEMIDE [Concomitant]
     Active Substance: FUROSEMIDE
     Indication: Product used for unknown indication
     Dates: start: 202002

REACTIONS (4)
  - Immune-mediated myositis [Fatal]
  - Cyanosis [Fatal]
  - Interstitial lung disease [Fatal]
  - Sjogren^s syndrome [Fatal]

NARRATIVE: CASE EVENT DATE: 20210801
